FAERS Safety Report 5273847-X (Version None)
Quarter: 2007Q1

REPORT INFORMATION
  Report Type: 
  Country: None (occurrence: None)
  Receive Date: 20070323
  Receipt Date: 20070309
  Transmission Date: 20070707
  Serious: Yes (Other)
  Sender: FDA-Public Use
  Company Number: US-KINGPHARMUSA00001-K200700280

PATIENT

DRUGS (3)
  1. SONATA [Suspect]
     Indication: SLEEP DISORDER
     Dosage: 1-10 CAPSULES, 5MG OR 10MG EACH, QD
     Route: 048
     Dates: start: 20041101
  2. SOLVEX   /00150901/ [Concomitant]
  3. EFFEXOR [Concomitant]
     Indication: DEPRESSION
     Dates: start: 20061101

REACTIONS (7)
  - DISSOCIATION [None]
  - DRUG DEPENDENCE [None]
  - DRUG INEFFECTIVE [None]
  - DRUG WITHDRAWAL SYNDROME [None]
  - EUPHORIC MOOD [None]
  - HEPATIC ENZYME INCREASED [None]
  - INTENTIONAL OVERDOSE [None]
